FAERS Safety Report 14690497 (Version 1)
Quarter: 2018Q1

REPORT INFORMATION
  Report Type: Other
  Country: CN (occurrence: CN)
  Receive Date: 20180328
  Receipt Date: 20180328
  Transmission Date: 20180509
  Serious: Yes (Hospitalization, Other)
  Sender: FDA-Public Use
  Company Number: CN-TAKEDA-2018MPI003197

PATIENT
  Age: 75 Year
  Sex: Male
  Weight: 64 kg

DRUGS (3)
  1. DEXAMETHASONE. [Suspect]
     Active Substance: DEXAMETHASONE
     Indication: NON-HODGKIN^S LYMPHOMA
     Dosage: 10 MG, UNK
     Route: 065
     Dates: start: 20170927
  2. VELCADE [Suspect]
     Active Substance: BORTEZOMIB
     Indication: NON-HODGKIN^S LYMPHOMA
     Dosage: 2.2 MG, 1/WEEK
     Route: 041
     Dates: start: 20170927, end: 20170927
  3. THALIDOMIDE [Suspect]
     Active Substance: THALIDOMIDE
     Indication: NON-HODGKIN^S LYMPHOMA
     Dosage: 100 MG, UNK
     Route: 048
     Dates: start: 20170927, end: 20170927

REACTIONS (3)
  - Bone marrow failure [Recovering/Resolving]
  - Off label use [Unknown]
  - Product use in unapproved indication [Unknown]

NARRATIVE: CASE EVENT DATE: 20170927
